FAERS Safety Report 5332155-9 (Version None)
Quarter: 2007Q2

REPORT INFORMATION
  Report Type: 
  Country: None (occurrence: None)
  Receive Date: 20070521
  Receipt Date: 20070504
  Transmission Date: 20071010
  Serious: Yes (Death)
  Sender: FDA-Public Use
  Company Number: 111761ISR

PATIENT
  Age: 63 Year
  Sex: Female

DRUGS (9)
  1. CITALOPRAM HYDROBROMIDE [Suspect]
     Dosage: 10 MG
     Route: 048
  2. OMEPRAZOLE [Suspect]
     Dosage: 20 MG,1 IN 1 D
     Route: 048
  3. PERINDOPRIL [Suspect]
     Indication: HYPERTENSION
     Dosage: 4 MG,1 IN 1 D
     Route: 048
  4. DILTIAZEM HYDROCHLORIDE [Concomitant]
  5. BECLOMETHASONE DIPROPIONATE [Concomitant]
  6. FUROSEMIDE [Concomitant]
  7. SALBUTAMOL [Concomitant]
  8. SENNA ALEXANDRINA [Concomitant]
  9. B-KOMPLEX [Concomitant]

REACTIONS (6)
  - ANGIOEDEMA [None]
  - DYSPNOEA [None]
  - HYPERSENSITIVITY [None]
  - LARYNGEAL OEDEMA [None]
  - SPEECH DISORDER [None]
  - SWELLING FACE [None]
